FAERS Safety Report 7595194-3 (Version None)
Quarter: 2011Q3

REPORT INFORMATION
  Report Type: 
  Country: None (occurrence: None)
  Receive Date: 20110707
  Receipt Date: 20110701
  Transmission Date: 20111222
  Serious: Yes (Hospitalization)
  Sender: FDA-Public Use
  Company Number: DK-PFIZER INC-2011149443

PATIENT
  Sex: Female
  Weight: 48.9 kg

DRUGS (2)
  1. LEVOTHYROXINE [Concomitant]
     Dosage: 1X/DAY
     Dates: start: 20080827
  2. SOMATROPIN [Suspect]
     Indication: HYPOPITUITARISM

REACTIONS (1)
  - POLYMYALGIA RHEUMATICA [None]
